FAERS Safety Report 8707667 (Version 2)
Quarter: 2013Q1

REPORT INFORMATION
  Report Type: Spontaneous
  Country: US (occurrence: US)
  Receive Date: 20120806
  Receipt Date: 20130318
  Transmission Date: 20140127
  Serious: Yes (Disabling)
  Sender: FDA-Public Use
  Company Number: US-009507513-1207USA011615

PATIENT
  Age: 29 Year
  Sex: Female
  Weight: 56.24 kg

DRUGS (1)
  1. IMPLANON [Suspect]
     Indication: CONTRACEPTION
     Dosage: 1 DF, UNK
     Route: 059
     Dates: start: 20110603

REACTIONS (1)
  - Pelvic congestion [Not Recovered/Not Resolved]
